FAERS Safety Report 12895529 (Version 2)
Quarter: 2016Q4

REPORT INFORMATION
  Report Type: Spontaneous
  Country: CZ (occurrence: CZ)
  Receive Date: 20161030
  Receipt Date: 20161206
  Transmission Date: 20170207
  Serious: Yes (Life-Threatening, Hospitalization, Other)
  Sender: FDA-Public Use
  Company Number: CZ-AMGEN-CZESP2016149936

PATIENT
  Age: 60 Year
  Sex: Female
  Weight: 67 kg

DRUGS (14)
  1. ENBREL [Suspect]
     Active Substance: ETANERCEPT
     Indication: RHEUMATOID ARTHRITIS
     Dosage: 50 MG, WEEKLY
     Route: 058
     Dates: start: 20141209, end: 20160905
  2. TREXAN [Concomitant]
     Active Substance: METHOTREXATE SODIUM
     Dosage: 2.5 MG, 6X/WEEK
     Route: 048
     Dates: start: 2003
  3. OXYCONTIN [Concomitant]
     Active Substance: OXYCODONE HYDROCHLORIDE
     Dosage: 1-0-2
  4. ACIDUM FOLICUM [Concomitant]
     Active Substance: FOLIC ACID
     Dosage: AFTER TREXAN
  5. GABAPENTIN. [Concomitant]
     Active Substance: GABAPENTIN
     Dosage: 1-1/2-1
  6. LEFLUNOMIDE MEDAC [Concomitant]
     Indication: RHEUMATOID ARTHRITIS
     Dosage: 20 MG, 1X/DAY
     Route: 048
     Dates: start: 2008
  7. LISINOPRIL. [Concomitant]
     Active Substance: LISINOPRIL
  8. TREXAN [Concomitant]
     Active Substance: METHOTREXATE SODIUM
     Dosage: 2.5 MG, 6X/WEEK
     Route: 048
     Dates: start: 2003
  9. MEDROL [Concomitant]
     Active Substance: METHYLPREDNISOLONE
     Indication: RHEUMATOID ARTHRITIS
     Dosage: 4 MG, 1X/DAY
     Route: 048
     Dates: start: 2003
  10. VIGANTOL [Concomitant]
     Active Substance: CHOLECALCIFEROL
  11. CALTRATE WITH VITAMIN D [Concomitant]
     Active Substance: CALCIUM CARBONATE\CHOLECALCIFEROL
     Dosage: 1 DF, 1X/DAY
  12. NOLPAZA [Concomitant]
     Active Substance: PANTOPRAZOLE SODIUM
  13. LETROX [Concomitant]
     Active Substance: LEVOTHYROXINE SODIUM
  14. MEDROL [Concomitant]
     Active Substance: METHYLPREDNISOLONE
     Indication: RHEUMATOID ARTHRITIS
     Dosage: 4 MG, 1X/DAY
     Route: 048
     Dates: start: 2003

REACTIONS (4)
  - Pneumonia [Recovered/Resolved]
  - Cor pulmonale acute [Recovered/Resolved]
  - Pulmonary infarction [Recovered/Resolved]
  - Pulmonary embolism [Recovered/Resolved]

NARRATIVE: CASE EVENT DATE: 20160910
